FAERS Safety Report 7177767-5 (Version None)
Quarter: 2010Q4

REPORT INFORMATION
  Report Type: 
  Country: None (occurrence: None)
  Receive Date: 20101123
  Receipt Date: 20100813
  Transmission Date: 20110411
  Serious: No
  Sender: FDA-Public Use
  Company Number: 017195

PATIENT
  Sex: Female
  Weight: 82.5 kg

DRUGS (10)
  1. CIMZIA [Suspect]
     Indication: CROHN'S DISEASE
     Dosage: (200 MG 1X/2 WEEKS SUBCUTANEOUS)
     Route: 058
     Dates: start: 20100610
  2. METHOTREXATE [Concomitant]
  3. REQUIP [Concomitant]
  4. SIMVASTATIN [Concomitant]
  5. TEMAZEPAM [Concomitant]
  6. TRAZODONE HCL [Concomitant]
  7. FENTANYL [Concomitant]
  8. FOLIC ACID [Concomitant]
  9. HYDROCODONE [Concomitant]
  10. HYDROMORPHONE HCL [Concomitant]

REACTIONS (1)
  - ABDOMINAL PAIN [None]
